FAERS Safety Report 4272491-0 (Version None)
Quarter: 2004Q1

REPORT INFORMATION
  Report Type: 
  Country: None (occurrence: None)
  Receive Date: 20040115
  Receipt Date: 19990618
  Transmission Date: 20041129
  Serious: Yes (Disabling)
  Sender: FDA-Public Use
  Company Number: WAES 99061470

PATIENT
  Age: 67 Year
  Sex: Male

DRUGS (6)
  1. BUSPAR [Concomitant]
     Indication: ANXIETY DISORDER
  2. PROSCAR [Suspect]
     Indication: BENIGN PROSTATIC HYPERPLASIA
     Route: 048
     Dates: start: 19980101, end: 19990501
  3. PROSCAR [Suspect]
     Route: 048
     Dates: start: 20020101
  4. PROSCAR [Suspect]
     Indication: MALE PATTERN BALDNESS
     Route: 048
     Dates: start: 19980101, end: 19990501
  5. PROSCAR [Suspect]
     Route: 048
     Dates: start: 20020101
  6. ZESTRIL [Concomitant]

REACTIONS (8)
  - BREAST TENDERNESS [None]
  - EJACULATION FAILURE [None]
  - ERECTILE DYSFUNCTION [None]
  - HAIR COLOUR CHANGES [None]
  - HYPERTROPHY BREAST [None]
  - LOSS OF LIBIDO [None]
  - MEDICATION ERROR [None]
  - SEMEN VOLUME DECREASED [None]
